FAERS Safety Report 9490525 (Version 1)
Quarter: 2013Q3

REPORT INFORMATION
  Report Type: Spontaneous
  Country: US (occurrence: None)
  Receive Date: 20130827
  Receipt Date: 20130827
  Transmission Date: 20140515
  Serious: No
  Sender: FDA-Public Use
  Company Number: None

PATIENT
  Age: 58 None
  Sex: Male

DRUGS (16)
  1. FINASTERIDE [Suspect]
     Indication: PROSTATITIS
     Dosage: 5 MG DAILY BEDTIME BY MOUTH
     Route: 048
  2. SULFAMETHOXAZOLE [Concomitant]
  3. TAMSULOSIN [Concomitant]
  4. VICA FORTE [Concomitant]
  5. VITAMIN D [Concomitant]
  6. HUMIRA PEN [Concomitant]
  7. NEXIUM [Concomitant]
  8. FOLIC ACID [Concomitant]
  9. CITALOPRAM [Concomitant]
  10. CRANBERRY [Concomitant]
  11. CITRACAL [Concomitant]
  12. FISH OIL [Concomitant]
  13. STOOL SOFTNER [Concomitant]
  14. MIRLAX [Concomitant]
  15. TYLENOL ARTHRITIS [Concomitant]
  16. ZINE [Concomitant]

REACTIONS (3)
  - Semen volume decreased [None]
  - Ejaculation failure [None]
  - Erectile dysfunction [None]
